FAERS Safety Report 22399910 (Version 1)
Quarter: 2023Q2

REPORT INFORMATION
  Report Type: Spontaneous
  Country: ES (occurrence: ES)
  Receive Date: 20230602
  Receipt Date: 20230602
  Transmission Date: 20230721
  Serious: Yes (Other)
  Sender: FDA-Public Use
  Company Number: None

PATIENT
  Age: 11 Year
  Sex: Female
  Weight: 53.1 kg

DRUGS (7)
  1. INFLIXIMAB [Suspect]
     Active Substance: INFLIXIMAB
     Indication: Colitis ulcerative
     Dosage: 300MG (CYCLE 3, 4 WEEKS AFTER CYCLE 2), ONE VIAL
     Route: 042
     Dates: start: 20230320, end: 20230503
  2. CASENLAX [Concomitant]
     Indication: Product used for unknown indication
     Dosage: IN SACHET, 30 SACHETS, DOSE: UNKNOWN
     Route: 065
  3. FERPLEX [Concomitant]
     Indication: Product used for unknown indication
     Dosage: 20 DRINKABLE VIALS OF 15 ML, DOSE: UNKNOWN
     Route: 065
  4. CALCIUM CARBONATE\CHOLECALCIFEROL [Concomitant]
     Active Substance: CALCIUM CARBONATE\CHOLECALCIFEROL
     Indication: Product used for unknown indication
     Dosage: LIMON FLAVOR 500 MG/400 IU CHEWABLE TABLETS, 60 TABLETS DOSE: UNKNOWN
     Route: 065
  5. ESOMEPRAZOLE [Concomitant]
     Active Substance: ESOMEPRAZOLE
     Indication: Product used for unknown indication
     Dosage: 28 CAPSULES, DOSE: UNKNOWN
     Route: 065
  6. METAMIZOLE SODIUM [Concomitant]
     Active Substance: METAMIZOLE SODIUM
     Indication: Product used for unknown indication
     Dosage: 500 MG/ML ORAL DROPS SOLUTION 1 BOTTLE OF 30 ML, DOSE: UNKNOWN
     Route: 065
  7. ACETAMINOPHEN [Concomitant]
     Active Substance: ACETAMINOPHEN
     Indication: Product used for unknown indication
     Dosage: 100 MG/ML ORAL SOLUTION/SUSPENSION 60 ML 1 BOTTLE, DOSE: UNKNOWN
     Route: 065

REACTIONS (5)
  - Face oedema [Recovered/Resolved]
  - Vomiting [Recovered/Resolved]
  - Nausea [Recovered/Resolved]
  - Rash maculo-papular [Recovered/Resolved]
  - Product use issue [Unknown]

NARRATIVE: CASE EVENT DATE: 20230503
